FAERS Safety Report 8479362-4 (Version None)
Quarter: 2012Q2

REPORT INFORMATION
  Report Type: 
  Country: None (occurrence: None)
  Receive Date: 20120402
  Receipt Date: 20101215
  Transmission Date: 20120825
  Serious: Yes (Other)
  Sender: FDA-Public Use
  Company Number: A-US2010-42793

PATIENT
  Age: 52 Year
  Sex: Female
  Weight: 65.8 kg

DRUGS (2)
  1. TRACLEER [Suspect]
     Indication: PULMONARY ARTERIAL HYPERTENSION
     Dosage: 62.5 MG, ORAL 125 MG, ORAL
     Route: 048
     Dates: start: 20100914, end: 20101014
  2. PRAVASTATIN [Concomitant]

REACTIONS (4)
  - LIVER FUNCTION TEST ABNORMAL [None]
  - BACK PAIN [None]
  - ABDOMINAL PAIN UPPER [None]
  - FATIGUE [None]
